FAERS Safety Report 5739695-9 (Version None)
Quarter: 2008Q2

REPORT INFORMATION
  Report Type: 
  Country: None (occurrence: None)
  Receive Date: 20080513
  Receipt Date: 20080424
  Transmission Date: 20081010
  Serious: Yes (Death)
  Sender: FDA-Public Use
  Company Number: S08-CAN-01694-01

PATIENT
  Age: 18 Year
  Sex: Female

DRUGS (2)
  1. ESCITALOPRAM [Suspect]
  2. ZOPICLONE [Suspect]

REACTIONS (1)
  - SUICIDAL IDEATION [None]
